FAERS Safety Report 9477819 (Version 2)
Quarter: 2013Q4

REPORT INFORMATION
  Report Type: Report from Study
  Country: CA (occurrence: CA)
  Receive Date: 20130827
  Receipt Date: 20131017
  Transmission Date: 20140711
  Serious: Yes (Hospitalization)
  Sender: FDA-Public Use
  Company Number: CA-ROCHE-1266645

PATIENT
  Age: 58 Year
  Sex: Female

DRUGS (13)
  1. RITUXAN [Suspect]
     Indication: RHEUMATOID ARTHRITIS
     Dosage: FREQUENCY: DAY 1, 15
     Route: 042
     Dates: start: 20110302, end: 20130815
  2. ACETAMINOPHEN [Concomitant]
     Indication: PREMEDICATION
     Route: 048
     Dates: start: 20110302, end: 20130815
  3. DIPHENHYDRAMINE HCL [Concomitant]
     Indication: PREMEDICATION
     Route: 048
     Dates: start: 20110302, end: 20130815
  4. METHYLPREDNISOLONE [Concomitant]
     Indication: PREMEDICATION
     Route: 042
     Dates: start: 20110302, end: 20130815
  5. ARTHROTEC [Concomitant]
  6. PREDNISONE [Concomitant]
  7. ALENDRONATE [Concomitant]
  8. FOLIC ACID [Concomitant]
  9. METHOTREXATE [Concomitant]
  10. SYNTHROID [Concomitant]
  11. RANITIDINE [Concomitant]
  12. ATIVAN [Concomitant]
  13. TYLENOL [Concomitant]

REACTIONS (1)
  - Breast cancer [Unknown]
